FAERS Safety Report 20156979 (Version 1)
Quarter: 2021Q4

REPORT INFORMATION
  Report Type: Spontaneous
  Country: DE (occurrence: DE)
  Receive Date: 20211207
  Receipt Date: 20211207
  Transmission Date: 20220304
  Serious: Yes (Other)
  Sender: FDA-Public Use
  Company Number: DE-TAKEDA-2021TEU010047

PATIENT
  Age: 10 Year
  Sex: Male

DRUGS (2)
  1. MIFAMURTIDE [Suspect]
     Active Substance: MIFAMURTIDE
     Indication: Product used for unknown indication
     Dosage: 2 MILLIGRAM/SQ. METER
     Route: 042
  2. COLCHICINE [Suspect]
     Active Substance: COLCHICINE
     Indication: Type IV hypersensitivity reaction
     Dosage: 0.5 MILLIGRAM, TID
     Route: 065

REACTIONS (8)
  - Spleen disorder [Recovered/Resolved]
  - Type IV hypersensitivity reaction [Unknown]
  - Pneumonia [Unknown]
  - Pericarditis [Unknown]
  - Pericardial effusion [Recovered/Resolved]
  - Pleural effusion [Unknown]
  - Pyrexia [Unknown]
  - Off label use [Unknown]
